FAERS Safety Report 6023949-5 (Version None)
Quarter: 2008Q4

REPORT INFORMATION
  Report Type: 
  Country: None (occurrence: None)
  Receive Date: 20081230
  Receipt Date: 20081210
  Transmission Date: 20090506
  Serious: No
  Sender: FDA-Public Use
  Company Number: US-B.I. PHARMACEUTICALS,INC./RIDGEFIELD-2008-BP-18548BP

PATIENT
  Sex: Male

DRUGS (4)
  1. MICARDIS [Suspect]
     Indication: HYPERTENSION
     Route: 048
  2. LOTREL [Concomitant]
     Route: 048
  3. VYTORIN [Concomitant]
     Route: 048
  4. BETA BLOCKER [Concomitant]
     Route: 048

REACTIONS (1)
  - NIGHTMARE [None]
